FAERS Safety Report 11526178 (Version 3)
Quarter: 2015Q4

REPORT INFORMATION
  Report Type: Spontaneous
  Country: US (occurrence: US)
  Receive Date: 20150919
  Receipt Date: 20151015
  Transmission Date: 20160304
  Serious: Yes (Other)
  Sender: FDA-Public Use
  Company Number: US-AMGEN-USASP2015096957

PATIENT
  Age: 27 Year
  Sex: Female
  Weight: 101 kg

DRUGS (7)
  1. ETANERCEPT [Suspect]
     Active Substance: ETANERCEPT
     Dosage: UNK UNK, Q2WK
     Route: 065
     Dates: start: 20130531, end: 20130726
  2. NAPROSYN [Concomitant]
     Active Substance: NAPROXEN
     Dosage: UNK
     Dates: start: 20140703
  3. ACETAMINOPHEN. [Concomitant]
     Active Substance: ACETAMINOPHEN
     Dosage: UNK
     Dates: start: 201305
  4. ETANERCEPT [Suspect]
     Active Substance: ETANERCEPT
     Dosage: UNK, Q4WK
     Route: 058
     Dates: start: 20140729, end: 20141028
  5. ETANERCEPT [Suspect]
     Active Substance: ETANERCEPT
     Indication: PSORIASIS
     Dosage: UNK
     Route: 058
     Dates: start: 20130531, end: 20130531
  6. ETANERCEPT [Suspect]
     Active Substance: ETANERCEPT
     Dosage: UNK, Q4WK
     Route: 058
     Dates: end: 20140703
  7. ETANERCEPT [Suspect]
     Active Substance: ETANERCEPT
     Dosage: UNK
     Route: 058
     Dates: start: 20130823

REACTIONS (3)
  - Pregnancy [Recovered/Resolved]
  - Maternal exposure during pregnancy [Recovered/Resolved]
  - Abortion spontaneous [Recovered/Resolved]

NARRATIVE: CASE EVENT DATE: 20141114
